FAERS Safety Report 9943819 (Version 1)
Quarter: 2014Q1

REPORT INFORMATION
  Report Type: Spontaneous
  Country: US (occurrence: US)
  Receive Date: 20140303
  Receipt Date: 20140303
  Transmission Date: 20141002
  Serious: Yes (Hospitalization)
  Sender: FDA-Public Use
  Company Number: US-B.I. PHARMACEUTICALS,INC./RIDGEFIELD-2014-BI-08349BP

PATIENT
  Age: 68 Year
  Sex: Male

DRUGS (8)
  1. COMBIVENT [Suspect]
     Indication: CHRONIC OBSTRUCTIVE PULMONARY DISEASE
     Dosage: STRENGTH: 20 MCG / 100 MCG; DAILY DOSE: 100 MCG /  500 MCG
     Route: 055
     Dates: start: 201302
  2. DULERA [Concomitant]
     Route: 055
  3. TUDORZA [Concomitant]
     Route: 055
  4. ZETIA [Concomitant]
     Dosage: 10 MG
     Route: 048
  5. BISOPROLOL [Concomitant]
     Dosage: 2.5 MG
     Route: 048
  6. CLOPIDOGREL [Concomitant]
     Dosage: 75 MG
     Route: 048
  7. ASPIRIN [Concomitant]
     Route: 048
  8. PRAVASTATIN [Concomitant]
     Dosage: 40 MG
     Route: 048

REACTIONS (1)
  - Myocardial infarction [Recovered/Resolved]
